FAERS Safety Report 13804869 (Version 4)
Quarter: 2019Q2

REPORT INFORMATION
  Report Type: Spontaneous
  Country: US (occurrence: US)
  Receive Date: 20170728
  Receipt Date: 20190423
  Transmission Date: 20190711
  Serious: Yes (Hospitalization)
  Sender: FDA-Public Use
  Company Number: US-PFIZER INC-2017326573

PATIENT
  Age: 34 Year
  Sex: Male
  Weight: 88.44 kg

DRUGS (2)
  1. OXYCODONE [Concomitant]
     Active Substance: OXYCODONE
     Indication: PAIN
     Dosage: 10 MG, 4 TIMES A DAY BY MOUTH ON BAD DAY; AND SOMETIMES IF IT IS NOT TOO BAD 2 TABLETS A DAY
     Route: 048
     Dates: start: 2009
  2. VIAGRA [Suspect]
     Active Substance: SILDENAFIL CITRATE
     Indication: ERECTILE DYSFUNCTION
     Dosage: 100 MG, WITH WATER ON AN EMPTY STOMACH EVERY 2 DAYS, BUT HE DOES NOT TAKE IT 2 DAYS IN A ROW

REACTIONS (6)
  - Therapeutic product effect incomplete [Unknown]
  - Pelvic fracture [Recovered/Resolved]
  - Urethral perforation [Unknown]
  - Blood testosterone decreased [Unknown]
  - Accident [Unknown]
  - Panic attack [Unknown]
